FAERS Safety Report 19932994 (Version 1)
Quarter: 2021Q4

REPORT INFORMATION
  Report Type: Spontaneous
  Country: US (occurrence: US)
  Receive Date: 20211006
  Receipt Date: 20211006
  Transmission Date: 20220303
  Serious: Yes (Death)
  Sender: FDA-Public Use
  Company Number: None

PATIENT
  Age: 60 Year
  Sex: Male

DRUGS (1)
  1. BARICITINIB [Suspect]
     Active Substance: BARICITINIB
     Indication: COVID-19 pneumonia
     Route: 048
     Dates: start: 20210920, end: 20211002

REACTIONS (5)
  - Cardiac arrest [None]
  - Renal failure [None]
  - Hypotension [None]
  - Cardiac septal hypertrophy [None]
  - Tachycardia [None]

NARRATIVE: CASE EVENT DATE: 20211003
